FAERS Safety Report 5884423-X (Version None)
Quarter: 2008Q3

REPORT INFORMATION
  Report Type: 
  Country: None (occurrence: None)
  Receive Date: 20080915
  Receipt Date: 20080904
  Transmission Date: 20090109
  Serious: Yes (Hospitalization)
  Sender: FDA-Public Use
  Company Number: US-PFIZER INC-2008073816

PATIENT
  Sex: Female
  Weight: 94.8 kg

DRUGS (13)
  1. SU-011,248 [Suspect]
     Indication: BREAST CANCER
     Route: 048
     Dates: start: 20080805, end: 20080826
  2. PACLITAXEL [Suspect]
     Indication: BREAST CANCER
     Route: 042
     Dates: start: 20080805, end: 20080805
  3. PACLITAXEL [Suspect]
     Route: 042
     Dates: start: 20080812
  4. ATIVAN [Concomitant]
     Indication: ANXIETY
     Route: 048
  5. PAXIL [Concomitant]
     Indication: DEPRESSION
     Route: 048
  6. ADDERALL 10 [Concomitant]
     Indication: ATTENTION DEFICIT/HYPERACTIVITY DISORDER
     Route: 048
     Dates: start: 20060918
  7. PRILOSEC [Concomitant]
     Route: 048
     Dates: start: 20041217
  8. OXYCODONE HCL [Concomitant]
     Indication: PAIN
     Route: 048
     Dates: start: 20080717
  9. COMPAZINE [Concomitant]
     Indication: NAUSEA
     Route: 048
     Dates: start: 20080812
  10. ALUMINIUM HYDROXIDE/DIPHENHYDRAMINE/MAGNESIUM HYDROXIDE/LIDOCAINE [Concomitant]
     Route: 048
     Dates: start: 20080812
  11. KYTRIL [Concomitant]
     Indication: NAUSEA
     Route: 048
     Dates: start: 20080812, end: 20080819
  12. MEDROL [Concomitant]
     Indication: RASH
     Dosage: TEXT:DOSE PACK
     Route: 048
     Dates: start: 20080817
  13. ZOFRAN [Concomitant]
     Indication: NAUSEA
     Route: 048
     Dates: start: 20080819

REACTIONS (1)
  - HIP FRACTURE [None]
